FAERS Safety Report 13179626 (Version 2)
Quarter: 2017Q2

REPORT INFORMATION
  Report Type: Spontaneous
  Country: US (occurrence: US)
  Receive Date: 20170202
  Receipt Date: 20170504
  Transmission Date: 20170830
  Serious: No
  Sender: FDA-Public Use
  Company Number: US-009507513-1701USA012180

PATIENT
  Age: 21 Year
  Sex: Female
  Weight: 43.99 kg

DRUGS (1)
  1. NEXPLANON [Suspect]
     Active Substance: ETONOGESTREL
     Indication: CONTRACEPTION
     Dosage: 1 DF, UNKNOWN
     Route: 059
     Dates: start: 20160609, end: 20170110

REACTIONS (6)
  - Device kink [Recovered/Resolved]
  - Device expulsion [Recovered/Resolved]
  - Device breakage [Recovered/Resolved]
  - Implant site pruritus [Recovered/Resolved]
  - Implant site erythema [Recovered/Resolved]
  - Migration of implanted drug [Recovered/Resolved]

NARRATIVE: CASE EVENT DATE: 201610
